FAERS Safety Report 12807471 (Version 1)
Quarter: 2016Q4

REPORT INFORMATION
  Report Type: Spontaneous
  Country: US (occurrence: US)
  Receive Date: 20161004
  Receipt Date: 20161004
  Transmission Date: 20170207
  Serious: Yes (Other)
  Sender: FDA-Public Use
  Company Number: US-BAYER-2016-191094

PATIENT
  Age: 61 Year
  Sex: Male

DRUGS (14)
  1. LEXAPRO [Concomitant]
     Active Substance: ESCITALOPRAM OXALATE
  2. TRAZODONE [Concomitant]
     Active Substance: TRAZODONE HYDROCHLORIDE
  3. PENTAZOCINE [Concomitant]
     Active Substance: PENTAZOCINE
  4. PREVACID [Concomitant]
     Active Substance: LANSOPRAZOLE
  5. TOPIRAMATE. [Concomitant]
     Active Substance: TOPIRAMATE
  6. NORCO [Concomitant]
     Active Substance: ACETAMINOPHEN\HYDROCODONE BITARTRATE
  7. CLARITIN [Suspect]
     Active Substance: LORATADINE
  8. CALCIUM [Concomitant]
     Active Substance: CALCIUM
  9. BENTYL [Concomitant]
     Active Substance: DICYCLOMINE HYDROCHLORIDE
  10. ATIVAN [Concomitant]
     Active Substance: LORAZEPAM
  11. ZOFRAN [Concomitant]
     Active Substance: ONDANSETRON HYDROCHLORIDE
  12. LYRICA [Concomitant]
     Active Substance: PREGABALIN
  13. VITAMIN D [Concomitant]
     Active Substance: CHOLECALCIFEROL
  14. CYCLOBENZAPRINE [Concomitant]
     Active Substance: CYCLOBENZAPRINE

REACTIONS (3)
  - Thrombocytopenia [None]
  - Cytopenia [None]
  - Leukopenia [None]
